FAERS Safety Report 9315910 (Version 3)
Quarter: 2013Q2

REPORT INFORMATION
  Report Type: Spontaneous
  Country: US (occurrence: US)
  Receive Date: 20130530
  Receipt Date: 20130618
  Transmission Date: 20140414
  Serious: Yes (Other)
  Sender: FDA-Public Use
  Company Number: US-AMGEN-USASP2013037110

PATIENT
  Age: 54 Year
  Sex: Male
  Weight: 53 kg

DRUGS (4)
  1. EPOGEN [Suspect]
     Indication: RENAL FAILURE CHRONIC
     Dosage: 10000 UNK, Q3WK
     Route: 042
     Dates: start: 20090909
  2. EPOGEN [Suspect]
     Indication: ANAEMIA
  3. OMONTYS [Suspect]
     Dosage: UNK
     Dates: start: 201207, end: 201211
  4. VITAMIN B12                        /00056201/ [Concomitant]
     Dosage: UNK

REACTIONS (3)
  - Haemoglobin decreased [Unknown]
  - Therapeutic response decreased [Unknown]
  - Drug ineffective [Not Recovered/Not Resolved]
